FAERS Safety Report 24325502 (Version 1)
Quarter: 2024Q3

REPORT INFORMATION
  Report Type: Spontaneous
  Country: IN (occurrence: IN)
  Receive Date: 20240917
  Receipt Date: 20240917
  Transmission Date: 20241017
  Serious: Yes (Other)
  Sender: STRIDES
  Company Number: IN-STRIDES ARCOLAB LIMITED-2024SP011729

PATIENT
  Age: 67 Year
  Sex: Male

DRUGS (4)
  1. ETOPOSIDE [Suspect]
     Active Substance: ETOPOSIDE
     Indication: Cutaneous T-cell lymphoma
     Dosage: 50 MILLIGRAM/SQ. METER, CYCLICAL (6 CYCLES)
     Route: 065
  2. PREDNISOLONE [Suspect]
     Active Substance: PREDNISOLONE
     Indication: Cutaneous T-cell lymphoma
     Dosage: 10 MILLIGRAM, CYCLICAL (6 CYCLES)
     Route: 065
  3. CYCLOPHOSPHAMIDE [Suspect]
     Active Substance: CYCLOPHOSPHAMIDE
     Indication: Cutaneous T-cell lymphoma
     Dosage: 750 MILLIGRAM/SQ. METER, CYCLICAL (6 CYCLES)
     Route: 065
  4. VINCRISTINE [Suspect]
     Active Substance: VINCRISTINE
     Indication: Cutaneous T-cell lymphoma
     Dosage: 1.4 MILLIGRAM/SQ. METER, CYCLICAL (6 CYCLES)
     Route: 065

REACTIONS (4)
  - Tongue pigmentation [Unknown]
  - Tooth discolouration [Unknown]
  - Taste disorder [Recovered/Resolved]
  - Off label use [Unknown]
